FAERS Safety Report 4430705-8 (Version None)
Quarter: 2004Q3

REPORT INFORMATION
  Report Type: 
  Country: None (occurrence: None)
  Receive Date: 20040721
  Receipt Date: 20040204
  Transmission Date: 20050211
  Serious: Yes (Life-Threatening, Hospitalization, Other)
  Sender: FDA-Public Use
  Company Number: WAES 0402USA00394

PATIENT
  Age: 49 Year
  Sex: Female
  Weight: 52.1637 kg

DRUGS (2)
  1. VIOXX [Suspect]
     Indication: LOCALISED OSTEOARTHRITIS
     Dosage: 25-50 MG/DAILY/PO
     Route: 048
     Dates: end: 20040110
  2. ZOLOFT [Concomitant]

REACTIONS (1)
  - GASTRIC ULCER HAEMORRHAGE [None]
